FAERS Safety Report 12343159 (Version 1)
Quarter: 2016Q2

REPORT INFORMATION
  Report Type: Spontaneous
  Country: FR (occurrence: FR)
  Receive Date: 20160506
  Receipt Date: 20160506
  Transmission Date: 20160815
  Serious: Yes (Hospitalization, Other)
  Sender: FDA-Public Use
  Company Number: FR-PFIZER INC-2016237565

PATIENT
  Age: 75 Year
  Sex: Male

DRUGS (13)
  1. LAMOTRIGIN [Concomitant]
     Active Substance: LAMOTRIGINE
     Dosage: 100 MG, 2X/DAY (MORNING AND EVENING)
  2. MOVICOL [Concomitant]
     Active Substance: POLYETHYLENE GLYCOL 3350\POTASSIUM CHLORIDE\SODIUM BICARBONATE\SODIUM CHLORIDE
     Dosage: 2 DF, 3X/DAY (MORNING, LUNCH, EVENING)
  3. AVLOCARDYL /00030002/ [Concomitant]
     Dosage: 0.5 DF, 1X/DAY
  4. LEVOTHYROX [Concomitant]
     Active Substance: LEVOTHYROXINE
     Dosage: 50 MG, 1X/DAY (IN TE MORNING)
  5. INEXIUM /01479302/ [Concomitant]
     Active Substance: ESOMEPRAZOLE MAGNESIUM
     Dosage: 40 MG, 1X/DAY (IN THE MORNING)
  6. DAFALGAN [Concomitant]
     Active Substance: ACETAMINOPHEN
     Indication: PAIN
     Dosage: 1000 MG, 3X/DAY (2 DF OF 500MG: MORNING, LUNCH, EVENING)
  7. TEMESTA /00273201/ [Concomitant]
     Active Substance: LORAZEPAM
     Dosage: 1 MG, 2X/DAY (MORNING AND EVENING)
  8. NOVOMIX [Concomitant]
     Active Substance: INSULIN ASPART
     Dosage: 37 IU, DAILY,  (20 IU IN THE MORNING, 17 IU IN THE EVENING)
  9. XEROQUEL [Suspect]
     Active Substance: QUETIAPINE FUMARATE
     Indication: BIPOLAR DISORDER
     Dosage: 600 MG, 1X/DAY (2DF OF 300 MG IN THE EVENING)
     Route: 048
     Dates: end: 20151109
  10. PLAVIX [Concomitant]
     Active Substance: CLOPIDOGREL BISULFATE
     Dosage: 75 MG, 1X/DAY (IN THE MORNING)
  11. NOVORAPID [Concomitant]
     Active Substance: INSULIN ASPART
     Dosage: 6 IU, 1X/DAY (AT LUNCH TIME)
  12. LYRICA [Suspect]
     Active Substance: PREGABALIN
     Indication: BIPOLAR DISORDER
     Dosage: 100 MG, 3X/DAY (MORNING, LUNCH, EVENING)
     Route: 048
     Dates: end: 20151109
  13. PRAVASTATIN [Concomitant]
     Active Substance: PRAVASTATIN\PRAVASTATIN SODIUM
     Dosage: 20 MG, 1X/DAY (IN THE MORNING)

REACTIONS (9)
  - Condition aggravated [Recovered/Resolved]
  - Aphasia [Recovered/Resolved]
  - Confusional state [Recovered/Resolved]
  - Hypertension [Recovered/Resolved]
  - Tremor [Recovered/Resolved]
  - Ketosis [Unknown]
  - Neutropenia [Recovered/Resolved]
  - Disorientation [Recovered/Resolved]
  - Agitation [Recovered/Resolved]

NARRATIVE: CASE EVENT DATE: 20151108
